FAERS Safety Report 9839859 (Version 1)
Quarter: 2014Q1

REPORT INFORMATION
  Report Type: Spontaneous
  Country: US (occurrence: US)
  Receive Date: 20140124
  Receipt Date: 20140124
  Transmission Date: 20141002
  Serious: Yes (Other)
  Sender: FDA-Public Use
  Company Number: PHEH2014US001526

PATIENT
  Sex: 0

DRUGS (1)
  1. MYFORTIC [Suspect]
     Indication: AUTOIMMUNE HEPATITIS
     Dosage: UNK

REACTIONS (1)
  - Adrenal insufficiency [Unknown]
